FAERS Safety Report 6524270-9 (Version None)
Quarter: 2009Q4

REPORT INFORMATION
  Report Type: 
  Country: None (occurrence: None)
  Receive Date: 20091230
  Receipt Date: 20091230
  Transmission Date: 20100525
  Serious: Yes (Hospitalization)
  Sender: FDA-Public Use
  Company Number: None

PATIENT
  Age: 63 Year
  Sex: Female

DRUGS (11)
  1. VORICONAZOLE [Suspect]
     Indication: PNEUMONIA FUNGAL
     Dosage: 200MG Q12 IV
     Route: 042
     Dates: start: 20090921, end: 20090925
  2. ALLOPURINOL [Concomitant]
  3. DOCUSATE [Concomitant]
  4. FUROSEMIDE [Concomitant]
  5. ZOSYN [Concomitant]
  6. LEVOTHYROXINE SODIUM [Concomitant]
  7. HYDROCORTISONE [Concomitant]
  8. VANCOMYCIN [Concomitant]
  9. CYTARABINE [Concomitant]
  10. ONDANSETRON [Concomitant]
  11. DEXAMETHASONE [Concomitant]

REACTIONS (3)
  - HALLUCINATION [None]
  - READING DISORDER [None]
  - VISUAL IMPAIRMENT [None]
